FAERS Safety Report 9953176 (Version 1)
Quarter: 2014Q1

REPORT INFORMATION
  Report Type: Report from Study
  Country: US (occurrence: US)
  Receive Date: 20140304
  Receipt Date: 20140304
  Transmission Date: 20141002
  Serious: No
  Sender: FDA-Public Use
  Company Number: US-ABBVIE-13P-163-1077310-00

PATIENT
  Age: 47 Year
  Sex: Female

DRUGS (12)
  1. HUMIRA [Suspect]
     Indication: RHEUMATOID ARTHRITIS
     Dates: start: 201210
  2. HUMIRA [Suspect]
     Dates: start: 201301
  3. METHOTREXATE [Concomitant]
     Indication: RHEUMATOID ARTHRITIS
     Dosage: THREE DAYS AFTER HUMIRA DOSE
     Route: 048
  4. CELEXA [Concomitant]
     Indication: DEPRESSION
     Dosage: 60 MG DAILY
  5. NORCO [Concomitant]
     Indication: RHEUMATOID ARTHRITIS
     Dosage: 10/3.5
  6. NORCO [Concomitant]
     Indication: COLITIS ULCERATIVE
  7. MS [Concomitant]
     Indication: PAIN
     Dosage: AS NEEDED
  8. MS [Concomitant]
     Indication: RHEUMATOID ARTHRITIS
  9. MS [Concomitant]
     Indication: COLITIS ULCERATIVE
  10. PRENATAL VITAMINS [Concomitant]
     Indication: VITAMIN SUPPLEMENTATION
     Dosage: DAILY
  11. FE [Concomitant]
     Indication: ANAEMIA
     Dosage: DAILY
  12. AMBIEN [Concomitant]
     Indication: INSOMNIA
     Dosage: AT BEDTIME
     Route: 048

REACTIONS (10)
  - Drug dose omission [Unknown]
  - Injection site pain [Not Recovered/Not Resolved]
  - Injection site erythema [Not Recovered/Not Resolved]
  - Injection site papule [Not Recovered/Not Resolved]
  - Injection site pruritus [Not Recovered/Not Resolved]
  - Joint stiffness [Recovering/Resolving]
  - Pain [Recovering/Resolving]
  - Vitamin D decreased [Recovering/Resolving]
  - White blood cell count decreased [Recovering/Resolving]
  - Injection site haemorrhage [Recovering/Resolving]
